FAERS Safety Report 8784573 (Version 1)
Quarter: 2012Q4

REPORT INFORMATION
  Report Type: Spontaneous
  Country: US (occurrence: None)
  Receive Date: 20120907
  Receipt Date: 20120907
  Transmission Date: 20130627
  Serious: Yes (Other)
  Sender: FDA-Public Use
  Company Number: None

PATIENT
  Sex: Female

DRUGS (1)
  1. NORDITROPIN FLEXPRO 10 (NOVO NORDISK) [Suspect]
     Dates: start: 201104, end: 201208

REACTIONS (1)
  - Hepatic mass [None]
